FAERS Safety Report 5342413-X (Version None)
Quarter: 2007Q2

REPORT INFORMATION
  Report Type: 
  Country: None (occurrence: None)
  Receive Date: 20070601
  Receipt Date: 20070521
  Transmission Date: 20071010
  Serious: Yes (Life-Threatening, Hospitalization)
  Sender: FDA-Public Use
  Company Number: BE-PFIZER INC-2006092020

PATIENT
  Sex: Male
  Weight: 77 kg

DRUGS (15)
  1. SU-011,248 [Suspect]
     Indication: METASTATIC RENAL CELL CARCINOMA
     Route: 048
     Dates: start: 20060704, end: 20060725
  2. ALDACTAZINE [Concomitant]
     Route: 048
     Dates: start: 20010101, end: 20060726
  3. AMIODARONE HCL [Concomitant]
     Route: 048
     Dates: start: 20010101, end: 20060703
  4. LOSARTAN POTASSIUM [Concomitant]
     Route: 048
     Dates: start: 20010101, end: 20060703
  5. OL-AMINE [Concomitant]
     Dosage: FREQ:AS OCCASION REQUIRES
     Route: 048
     Dates: start: 20010101, end: 20060726
  6. DICLOFENAC SODIUM [Concomitant]
     Dosage: FREQ:AS OCCASION REQUIRES
     Route: 048
     Dates: start: 20060415, end: 20060726
  7. ALLOPURINOL [Concomitant]
     Route: 048
     Dates: start: 20010101
  8. LORMETAZEPAM [Concomitant]
     Route: 048
     Dates: start: 20060703, end: 20060726
  9. CODEINE PHOSPHATE AND ACETAMINOPHEN [Concomitant]
     Route: 048
     Dates: start: 20060703, end: 20060726
  10. ZOLEDRONIC ACID [Concomitant]
     Route: 042
     Dates: start: 20060703, end: 20060726
  11. BISACODYL [Concomitant]
     Route: 054
     Dates: start: 20060718, end: 20060726
  12. RANITIDINE [Concomitant]
     Route: 042
  13. PARACETAMOL [Concomitant]
     Route: 042
     Dates: start: 20060726, end: 20060727
  14. MACROGOL [Concomitant]
     Route: 048
     Dates: start: 20060726, end: 20060728
  15. ZOLPIDEM [Concomitant]
     Route: 048
     Dates: start: 20060726, end: 20060726

REACTIONS (9)
  - BLOOD FIBRINOGEN DECREASED [None]
  - DISSEMINATED INTRAVASCULAR COAGULATION [None]
  - HYPERBILIRUBINAEMIA [None]
  - HYPERCREATININAEMIA [None]
  - HYPERURICAEMIA [None]
  - INTERNATIONAL NORMALISED RATIO INCREASED [None]
  - OLIGURIA [None]
  - RENAL FAILURE [None]
  - THROMBOCYTOPENIA [None]
